FAERS Safety Report 5201825-5 (Version None)
Quarter: 2006Q4

REPORT INFORMATION
  Report Type: 
  Country: None (occurrence: None)
  Receive Date: 20061002
  Receipt Date: 20060711
  Transmission Date: 20070319
  Serious: Yes (Other)
  Sender: FDA-Public Use
  Company Number: 145089USA

PATIENT
  Sex: Female
  Weight: 65.318 kg

DRUGS (12)
  1. RIBAVIRIN [Suspect]
     Indication: HEPATITIS C
     Dosage: 200 MILLIGRAM QID ORAL
     Route: 048
     Dates: start: 20060301
  2. PEGASYS [Suspect]
     Indication: HEPATITIS C
     Dates: start: 20060301
  3. BONIVA [Concomitant]
  4. CALCIUM [Concomitant]
  5. VITAMINS NOS [Concomitant]
  6. ASCORBIC ACID [Concomitant]
  7. COENZYME Q10 [Concomitant]
  8. VITAMIN E [Concomitant]
  9. FIORICET [Concomitant]
  10. VIVELLE [Concomitant]
  11. BIOTIN [Concomitant]
  12. VITAMIN D [Concomitant]

REACTIONS (2)
  - ANAEMIA [None]
  - LEUKOPENIA [None]
